FAERS Safety Report 20161260 (Version 1)
Quarter: 2021Q4

REPORT INFORMATION
  Report Type: Spontaneous
  Country: US (occurrence: None)
  Receive Date: 20211207
  Receipt Date: 20211207
  Transmission Date: 20220303
  Serious: Yes (Death)
  Sender: FDA-Public Use
  Company Number: None

PATIENT
  Age: 91 Year
  Sex: Female

DRUGS (7)
  1. PROMACTA [Suspect]
     Active Substance: ELTROMBOPAG OLAMINE
     Indication: Thrombocytopenia
     Dosage: OTHER FREQUENCY : EVERY OTHER DAY;?
     Route: 048
     Dates: start: 20190604, end: 20211206
  2. ALPRAZOLAM [Concomitant]
     Active Substance: ALPRAZOLAM
  3. ANASTROZOLE [Concomitant]
     Active Substance: ANASTROZOLE
  4. OXYCODONE [Concomitant]
     Active Substance: OXYCODONE
  5. diltiazem CD 120mg [Concomitant]
  6. simavastatin 10mg [Concomitant]
  7. PANTOPRAZOLE SODIUM [Concomitant]
     Active Substance: PANTOPRAZOLE SODIUM

REACTIONS (1)
  - Death [None]

NARRATIVE: CASE EVENT DATE: 20211206
